FAERS Safety Report 23817665 (Version 1)
Quarter: 2024Q2

REPORT INFORMATION
  Report Type: Spontaneous
  Country: US (occurrence: None)
  Receive Date: 20240506
  Receipt Date: 20240506
  Transmission Date: 20240716
  Serious: No
  Sender: FDA-Public Use
  Company Number: US-ARIS GLOBAL-UCM202310-001322

PATIENT
  Age: 30 Year
  Sex: Male

DRUGS (1)
  1. DIVALPROEX SODIUM [Suspect]
     Active Substance: DIVALPROEX SODIUM
     Indication: Seizure
     Dates: start: 20231003

REACTIONS (5)
  - Behaviour disorder [Unknown]
  - Aggression [Unknown]
  - Irritability [Unknown]
  - Agitation [Unknown]
  - Anger [Unknown]

NARRATIVE: CASE EVENT DATE: 20231003
